FAERS Safety Report 6692514-9 (Version None)
Quarter: 2010Q2

REPORT INFORMATION
  Report Type: 
  Country: None (occurrence: None)
  Receive Date: 20100422
  Receipt Date: 20100412
  Transmission Date: 20101027
  Serious: Yes (Hospitalization)
  Sender: FDA-Public Use
  Company Number: B0648015A

PATIENT
  Sex: Male

DRUGS (1)
  1. CLAVULIN [Suspect]
     Indication: ACUTE TONSILLITIS
     Dosage: 1G PER DAY
     Route: 048
     Dates: start: 20100406, end: 20100406

REACTIONS (4)
  - ERYTHEMA [None]
  - FACE OEDEMA [None]
  - LARYNGOSPASM [None]
  - URTICARIA [None]
